FAERS Safety Report 15264208 (Version 1)
Quarter: 2018Q3

REPORT INFORMATION
  Report Type: Spontaneous
  Country: US (occurrence: US)
  Receive Date: 20180721
  Receipt Date: 20180721
  Transmission Date: 20181010
  Serious: Yes (Disabling)
  Sender: FDA-Public Use
  Company Number: None

PATIENT
  Age: 20 Year
  Sex: Female
  Weight: 74.25 kg

DRUGS (3)
  1. VIESE GREASE SHAMPOO [Suspect]
     Active Substance: COSMETICS
     Indication: ALOPECIA
     Dosage: ?          OTHER STRENGTH:NO LABEL;QUANTITY:1 NO LABEL;OTHER FREQUENCY:EVERY OTHER DAY;?
     Route: 061
  2. VIESE GREASE CONDITIONER [Suspect]
     Active Substance: COSMETICS
  3. VIESE GREASE PREVENT [Suspect]
     Active Substance: COSMETICS

REACTIONS (3)
  - Rash [None]
  - Product label issue [None]
  - Pruritus [None]

NARRATIVE: CASE EVENT DATE: 20180715
